FAERS Safety Report 9828032 (Version 2)
Quarter: 2014Q1

REPORT INFORMATION
  Report Type: Report from Study
  Country: JP (occurrence: JP)
  Receive Date: 20140117
  Receipt Date: 20140128
  Transmission Date: 20141002
  Serious: Yes (Hospitalization)
  Sender: FDA-Public Use
  Company Number: JP-ACTELION-A-CH2014-93560

PATIENT
  Age: 76 Year
  Sex: Female
  Weight: 37.9 kg

DRUGS (17)
  1. BOSENTAN [Suspect]
     Indication: SCLERODERMA ASSOCIATED DIGITAL ULCER
     Dosage: 62.5 MG, BID
     Route: 048
     Dates: start: 20131227, end: 20140109
  2. BERAPROST SODIUM [Concomitant]
     Dosage: 180 ?G, BID
  3. CADUET [Concomitant]
  4. BAYASPIRIN [Concomitant]
     Dosage: 100 MG, UNK
  5. PLAVIX [Concomitant]
     Dosage: 75 MG, OD
  6. ANPLAG [Concomitant]
     Dosage: 100 ?G, TID
  7. TAKEPRON [Concomitant]
     Dosage: 15 MG, OD
  8. METHYCOBAL [Concomitant]
     Dosage: 500 ?G, BID
  9. URSO [Concomitant]
     Dosage: 100 MG, TID
  10. MS ONSHIPPU [Concomitant]
  11. BONALON [Concomitant]
     Dosage: 35 MG, OD
  12. LOXONIN [Concomitant]
     Dosage: 60 MG, TID
  13. MUCOSTA [Concomitant]
     Dosage: 100 MG, TID
  14. PROSTANDIN [Concomitant]
  15. PURSENNID [Concomitant]
     Dosage: 24 MG, OD
  16. XALACOM [Concomitant]
  17. TRUSOPT [Concomitant]

REACTIONS (3)
  - Fluid retention [Not Recovered/Not Resolved]
  - Dyspnoea exertional [Not Recovered/Not Resolved]
  - Cardiomegaly [Not Recovered/Not Resolved]
